FAERS Safety Report 22116717 (Version 4)
Quarter: 2023Q2

REPORT INFORMATION
  Report Type: Spontaneous
  Country: IT (occurrence: IT)
  Receive Date: 20230320
  Receipt Date: 20230517
  Transmission Date: 20230721
  Serious: Yes (Other)
  Sender: FDA-Public Use
  Company Number: IT-GSKCCFEMEA-Case-01682652_AE-68068

PATIENT
  Age: 84 Year
  Sex: Female

DRUGS (2)
  1. FLUTICASONE PROPIONATE\SALMETEROL XINAFOATE [Suspect]
     Active Substance: FLUTICASONE PROPIONATE\SALMETEROL XINAFOATE
     Indication: Product used for unknown indication
     Dosage: UNK, 25MCG+250MCG
     Route: 065
  2. VENTOLIN [Suspect]
     Active Substance: ALBUTEROL SULFATE
     Indication: Asthma
     Dosage: 100 MICROGRAM
     Route: 065

REACTIONS (6)
  - Asthmatic crisis [Recovered/Resolved]
  - Arrhythmia [Unknown]
  - Asthma [Unknown]
  - Extrasystoles [Unknown]
  - Product dose omission issue [Unknown]
  - Product use complaint [Unknown]
